FAERS Safety Report 4964064-9 (Version None)
Quarter: 2006Q1

REPORT INFORMATION
  Report Type: 
  Country: None (occurrence: None)
  Receive Date: 20060330
  Receipt Date: 20060315
  Transmission Date: 20060701
  Serious: Yes (Other)
  Sender: FDA-Public Use
  Company Number: 2134

PATIENT
  Age: 54 Year
  Sex: Male

DRUGS (3)
  1. AVINZA [Suspect]
     Indication: PAIN
     Dates: start: 20060301, end: 20060306
  2. KADIAN [Suspect]
     Indication: PAIN
     Dates: start: 20060301, end: 20060306
  3. MORPHINE SULFATE [Concomitant]

REACTIONS (1)
  - INTENTIONAL OVERDOSE [None]
